FAERS Safety Report 16735464 (Version 1)
Quarter: 2019Q3

REPORT INFORMATION
  Report Type: Spontaneous
  Country: CN (occurrence: CN)
  Receive Date: 20190823
  Receipt Date: 20190823
  Transmission Date: 20191005
  Serious: Yes (Other)
  Sender: FDA-Public Use
  Company Number: CN-PFIZER INC-2019357267

PATIENT
  Age: 77 Year
  Sex: Male
  Weight: 61.5 kg

DRUGS (2)
  1. SODIUM CHLORIDE. [Concomitant]
     Active Substance: SODIUM CHLORIDE
     Indication: LUNG INFECTION
     Dosage: 100 ML, 2X/DAY
     Route: 041
     Dates: start: 20190812, end: 20190816
  2. TAZOCIN [Suspect]
     Active Substance: PIPERACILLIN SODIUM\TAZOBACTAM SODIUM
     Indication: LUNG INFECTION
     Dosage: 4.5 G, 2X/DAY
     Route: 041
     Dates: start: 20190812, end: 20190816

REACTIONS (1)
  - Tongue paralysis [Recovering/Resolving]

NARRATIVE: CASE EVENT DATE: 20190814
